FAERS Safety Report 16155309 (Version 17)
Quarter: 2021Q3

REPORT INFORMATION
  Report Type: Spontaneous
  Country: CA (occurrence: CA)
  Receive Date: 20190403
  Receipt Date: 20210911
  Transmission Date: 20211014
  Serious: Yes (Other)
  Sender: FDA-Public Use
  Company Number: CA-CELLTRION INC.-2018CA022170

PATIENT

DRUGS (33)
  1. INFLECTRA [Suspect]
     Active Substance: INFLIXIMAB-DYYB
     Dosage: 500 MG, AT 0, 2, 6 WEEKS THEN EVERY 8 WEEKS
     Route: 042
     Dates: start: 20180716, end: 20180716
  2. INFLECTRA [Suspect]
     Active Substance: INFLIXIMAB-DYYB
     Dosage: 500 MG, AT 0, 2, 6 WEEKS THEN EVERY 8 WEEKS
     Route: 042
     Dates: start: 20181003, end: 20181003
  3. INFLECTRA [Suspect]
     Active Substance: INFLIXIMAB-DYYB
     Dosage: 8MG/KG, EVERY 8 WEEKS
     Route: 042
     Dates: start: 20201124
  4. INFLECTRA [Suspect]
     Active Substance: INFLIXIMAB-DYYB
     Dosage: 8MG/KG, EVERY 8 WEEKS
     Route: 042
     Dates: start: 20210518
  5. AAS [Concomitant]
     Active Substance: ASPIRIN
     Dosage: 80 MG
     Route: 065
  6. INFLECTRA [Suspect]
     Active Substance: INFLIXIMAB-DYYB
     Dosage: 8MG/KG, EVERY 8 WEEKS
     Route: 042
     Dates: start: 20190320, end: 20190320
  7. INFLECTRA [Suspect]
     Active Substance: INFLIXIMAB-DYYB
     Dosage: 8MG/KG, EVERY 8 WEEKS
     Route: 042
     Dates: start: 20200804, end: 20200804
  8. INFLECTRA [Suspect]
     Active Substance: INFLIXIMAB-DYYB
     Dosage: 8MG/KG, EVERY 8 WEEKS
     Route: 042
     Dates: start: 20190708, end: 20190708
  9. INFLECTRA [Suspect]
     Active Substance: INFLIXIMAB-DYYB
     Dosage: 8MG/KG, EVERY 8 WEEKS
     Route: 042
     Dates: start: 20210119
  10. INFLECTRA [Suspect]
     Active Substance: INFLIXIMAB-DYYB
     Dosage: 8MG/KG, EVERY 8 WEEKS
     Route: 042
     Dates: start: 20210706
  11. INFLECTRA [Suspect]
     Active Substance: INFLIXIMAB-DYYB
     Dosage: 500 MG, AT 0, 2, 6 WEEKS THEN EVERY 8 WEEKS/WEEK 6 DOSE
     Route: 042
     Dates: start: 20180817, end: 20180817
  12. INFLECTRA [Suspect]
     Active Substance: INFLIXIMAB-DYYB
     Dosage: 8MG/KG, EVERY 8 WEEKS
     Route: 042
     Dates: start: 20190320, end: 20190320
  13. INFLECTRA [Suspect]
     Active Substance: INFLIXIMAB-DYYB
     Dosage: 8MG/KG, EVERY 8 WEEKS
     Route: 042
     Dates: start: 20191029, end: 20191029
  14. INFLECTRA [Suspect]
     Active Substance: INFLIXIMAB-DYYB
     Dosage: 8MG/KG, EVERY 8 WEEKS
     Route: 042
     Dates: start: 20200414, end: 20200414
  15. INFLECTRA [Suspect]
     Active Substance: INFLIXIMAB-DYYB
     Dosage: 8MG/KG, EVERY 8 WEEKS
     Route: 042
     Dates: start: 20200609, end: 20200609
  16. INFLECTRA [Suspect]
     Active Substance: INFLIXIMAB-DYYB
     Dosage: 8MG/KG, EVERY 8 WEEKS
     Route: 042
     Dates: start: 20210831
  17. INFLECTRA [Suspect]
     Active Substance: INFLIXIMAB-DYYB
     Indication: COLITIS ULCERATIVE
     Dosage: 500 MG, AT 0, 2, 6 WEEKS THEN EVERY 8 WEEKS/WEEK 0 DOSE
     Route: 042
     Dates: start: 20180704, end: 20180704
  18. INFLECTRA [Suspect]
     Active Substance: INFLIXIMAB-DYYB
     Dosage: 500 MG, AT 0, 2, 6 WEEKS THEN EVERY 8 WEEKS
     Route: 042
     Dates: start: 20181128, end: 20181128
  19. INFLECTRA [Suspect]
     Active Substance: INFLIXIMAB-DYYB
     Dosage: 8MG/KG, EVERY 8 WEEKS
     Route: 042
     Dates: start: 20190903, end: 20190903
  20. SOTALOL. [Concomitant]
     Active Substance: SOTALOL
     Dosage: 1 DF
     Route: 065
  21. INFLECTRA [Suspect]
     Active Substance: INFLIXIMAB-DYYB
     Dosage: 8MG/KG, EVERY 8 WEEKS
     Route: 042
     Dates: start: 20190514, end: 20190514
  22. INFLECTRA [Suspect]
     Active Substance: INFLIXIMAB-DYYB
     Dosage: 8MG/KG, EVERY 8 WEEKS
     Route: 042
     Dates: start: 20191224, end: 20191224
  23. TAMSULOSIN [Concomitant]
     Active Substance: TAMSULOSIN
     Dosage: 1 DF
     Route: 065
  24. INFLECTRA [Suspect]
     Active Substance: INFLIXIMAB-DYYB
     Dosage: 500 MG, AT 0, 2, 6 WEEKS THEN EVERY 8 WEEKS
     Route: 042
     Dates: start: 20190123, end: 20190123
  25. INFLECTRA [Suspect]
     Active Substance: INFLIXIMAB-DYYB
     Dosage: 8MG/KG, EVERY 8 WEEKS
     Route: 042
     Dates: start: 20190320, end: 20190320
  26. INFLECTRA [Suspect]
     Active Substance: INFLIXIMAB-DYYB
     Dosage: 8MG/KG, EVERY 8 WEEKS
     Route: 042
     Dates: start: 20200218, end: 20200218
  27. INFLECTRA [Suspect]
     Active Substance: INFLIXIMAB-DYYB
     Dosage: 8MG/KG, EVERY 8 WEEKS
     Route: 042
     Dates: start: 20200609, end: 20200609
  28. INFLECTRA [Suspect]
     Active Substance: INFLIXIMAB-DYYB
     Dosage: 8MG/KG, EVERY 8 WEEKS
     Route: 042
     Dates: start: 20200929, end: 20200929
  29. CALCIUM [Concomitant]
     Active Substance: CALCIUM
     Dosage: 1 DF
     Route: 065
  30. TEMAZEPAM. [Concomitant]
     Active Substance: TEMAZEPAM
     Dosage: 1 DF
     Route: 065
  31. INFLECTRA [Suspect]
     Active Substance: INFLIXIMAB-DYYB
     Dosage: 8MG/KG, EVERY 8 WEEKS
     Route: 042
     Dates: start: 20191224, end: 20191224
  32. DUTASTERIDE. [Concomitant]
     Active Substance: DUTASTERIDE
     Dosage: 1 DF
     Route: 065
  33. RAMIPRIL. [Concomitant]
     Active Substance: RAMIPRIL
     Dosage: 1 DF
     Route: 065

REACTIONS (11)
  - Condition aggravated [Not Recovered/Not Resolved]
  - Off label use [Unknown]
  - Intentional product use issue [Unknown]
  - Blood pressure increased [Unknown]
  - Blood pressure fluctuation [Unknown]
  - Abscess [Unknown]
  - Cellulitis [Unknown]
  - Heart rate decreased [Unknown]
  - Psoriasis [Unknown]
  - Arthralgia [Unknown]
  - Abdominal distension [Not Recovered/Not Resolved]

NARRATIVE: CASE EVENT DATE: 2018
